FAERS Safety Report 7334643-2 (Version None)
Quarter: 2011Q1

REPORT INFORMATION
  Report Type: 
  Country: None (occurrence: None)
  Receive Date: 20110307
  Receipt Date: 20110224
  Transmission Date: 20110831
  Serious: Yes (Hospitalization)
  Sender: FDA-Public Use
  Company Number: IT-SANOFI-AVENTIS-2011SA011624

PATIENT
  Age: 45 Year
  Sex: Male

DRUGS (2)
  1. KETEK [Suspect]
     Indication: RESPIRATORY TRACT INFECTION
     Route: 048
     Dates: start: 20101127, end: 20101127
  2. BENTELAN [Concomitant]
     Route: 048
     Dates: start: 20101124, end: 20101127

REACTIONS (3)
  - ABDOMINAL PAIN UPPER [None]
  - NAUSEA [None]
  - MALAISE [None]
